FAERS Safety Report 7272622-4 (Version None)
Quarter: 2011Q1

REPORT INFORMATION
  Report Type: 
  Country: None (occurrence: None)
  Receive Date: 20110127
  Receipt Date: 20110117
  Transmission Date: 20110831
  Serious: Yes (Other)
  Sender: FDA-Public Use
  Company Number: GB-ACCORD-005086

PATIENT
  Age: 54 Year
  Sex: Female

DRUGS (2)
  1. CARBOPLATIN [Suspect]
     Indication: OVARIAN CANCER
  2. PACLITAXEL [Suspect]
     Indication: OVARIAN CANCER
     Dosage: 175.00-MG/M2

REACTIONS (10)
  - FLUSHING [None]
  - ALOPECIA [None]
  - HYPERHIDROSIS [None]
  - NEUROPATHY PERIPHERAL [None]
  - DRUG HYPERSENSITIVITY [None]
  - OVARIAN CANCER [None]
  - DISEASE PROGRESSION [None]
  - NEUTROPENIA [None]
  - CHEST DISCOMFORT [None]
  - ABDOMINAL DISTENSION [None]
